FAERS Safety Report 5117727-9 (Version None)
Quarter: 2006Q3

REPORT INFORMATION
  Report Type: 
  Country: None (occurrence: None)
  Receive Date: 20060926
  Receipt Date: 20060912
  Transmission Date: 20061208
  Serious: Yes (Hospitalization)
  Sender: FDA-Public Use
  Company Number: SE200606001739

PATIENT
  Age: 60 Year
  Sex: Male

DRUGS (1)
  1. ZYPREXA [Suspect]
     Indication: SCHIZOPHRENIA
     Dosage: 5 MG, DAILY (1/D), ORAL
     Route: 048
     Dates: start: 20030101

REACTIONS (3)
  - DEEP VEIN THROMBOSIS [None]
  - DRUG EFFECT DECREASED [None]
  - PULMONARY EMBOLISM [None]
